FAERS Safety Report 5209674-9 (Version None)
Quarter: 2006Q4

REPORT INFORMATION
  Report Type: 
  Country: None (occurrence: None)
  Receive Date: 20061122
  Receipt Date: 20060926
  Transmission Date: 20070319
  Serious: Yes (Hospitalization, Other)
  Sender: FDA-Public Use
  Company Number: 2006116110

PATIENT
  Age: 56 Year
  Sex: Male

DRUGS (7)
  1. LIPITOR [Suspect]
     Indication: BLOOD CHOLESTEROL
     Dates: start: 20060103
  2. LISINOPRIL [Suspect]
     Indication: BLOOD PRESSURE
  3. ENOXAPARIN SODIUM [Suspect]
  4. ASPIRIN [Concomitant]
  5. LANSOPRAZOLE [Concomitant]
  6. CARVEDILOL [Concomitant]
  7. HYDROCHLOROTHIAZIDE [Concomitant]

REACTIONS (2)
  - BLOOD GLUCOSE INCREASED [None]
  - RHABDOMYOLYSIS [None]
